FAERS Safety Report 17641789 (Version 4)
Quarter: 2020Q2

REPORT INFORMATION
  Report Type: Report from Study
  Country: US (occurrence: US)
  Receive Date: 20200408
  Receipt Date: 20200422
  Transmission Date: 20200713
  Serious: Yes (Death)
  Sender: FDA-Public Use
  Company Number: US-ROCHE-2576464

PATIENT
  Age: 71 Year
  Sex: Female

DRUGS (8)
  1. ESBRIET [Suspect]
     Active Substance: PIRFENIDONE
     Indication: ACUTE RESPIRATORY FAILURE
  2. ESBRIET [Suspect]
     Active Substance: PIRFENIDONE
     Indication: IDIOPATHIC PULMONARY FIBROSIS
     Dosage: 1 CAPSULE BY MOUTH 3 TIMES A DAY ON DAYS 1-7, ?2 CAPSULES BY MOUTH 3 TIMES A DAY ON DAYS 8-14, AND 3
     Route: 048
  3. ESBRIET [Suspect]
     Active Substance: PIRFENIDONE
     Indication: HYPOXIA
  4. ESBRIET [Suspect]
     Active Substance: PIRFENIDONE
     Indication: IDIOPATHIC PULMONARY FIBROSIS
     Dosage: 1 TABLE BY MOUTH 3 TIMES DAILY WITH MEALS
     Route: 048
  5. ESBRIET [Suspect]
     Active Substance: PIRFENIDONE
     Indication: INTERSTITIAL LUNG DISEASE
  6. ESBRIET [Suspect]
     Active Substance: PIRFENIDONE
     Indication: INTERSTITIAL LUNG DISEASE
  7. ESBRIET [Suspect]
     Active Substance: PIRFENIDONE
     Indication: HYPOXIA
  8. ESBRIET [Suspect]
     Active Substance: PIRFENIDONE
     Indication: ACUTE RESPIRATORY FAILURE

REACTIONS (2)
  - Influenza [Fatal]
  - Interstitial lung disease [Fatal]

NARRATIVE: CASE EVENT DATE: 20200312
